FAERS Safety Report 12788296 (Version 1)
Quarter: 2016Q3

REPORT INFORMATION
  Report Type: Spontaneous
  Country: IT (occurrence: IT)
  Receive Date: 20160928
  Receipt Date: 20160928
  Transmission Date: 20161109
  Serious: Yes (Other)
  Sender: FDA-Public Use
  Company Number: IT-SUN PHARMACEUTICAL INDUSTRIES LTD-2016RR-124500

PATIENT
  Age: 45 Year
  Sex: Female
  Weight: 48 kg

DRUGS (2)
  1. ABRAXANE [Suspect]
     Active Substance: PACLITAXEL
     Indication: PANCREATIC CARCINOMA
     Dosage: 185 MG CYCLICAL
     Route: 041
     Dates: start: 20160601
  2. GEMCITABINE [Suspect]
     Active Substance: GEMCITABINE\GEMCITABINE HYDROCHLORIDE
     Indication: PANCREATIC CARCINOMA
     Dosage: 1480 MG CYCLICAL
     Route: 041
     Dates: start: 20160601

REACTIONS (2)
  - Enteritis [Unknown]
  - Pancytopenia [Unknown]

NARRATIVE: CASE EVENT DATE: 20160826
